FAERS Safety Report 9536939 (Version 3)
Quarter: 2013Q4

REPORT INFORMATION
  Report Type: Report from Study
  Country: JP (occurrence: JP)
  Receive Date: 20130919
  Receipt Date: 20131105
  Transmission Date: 20140711
  Serious: Yes (Hospitalization)
  Sender: FDA-Public Use
  Company Number: JP-TAKEDA-2013TUS000008

PATIENT
  Age: 72 Year
  Sex: Male
  Weight: 51.8 kg

DRUGS (13)
  1. FEBURIC [Suspect]
     Indication: HYPERURICAEMIA
     Dosage: 10 MG, QD
     Route: 048
     Dates: start: 20120726, end: 20120808
  2. FEBURIC [Suspect]
     Dosage: 20 MG, QD
     Route: 048
     Dates: start: 20120809, end: 20120906
  3. ROCEPHIN /00672201/ [Suspect]
     Indication: PNEUMOTHORAX
     Dosage: 2 G, QD
     Route: 042
     Dates: start: 20120820, end: 20120827
  4. ROCEPHIN /00672201/ [Suspect]
     Indication: URINARY TRACT INFECTION
  5. ALDACTONE-A [Suspect]
     Indication: PLEURAL EFFUSION
     Dosage: 25 MG, QD
     Route: 048
     Dates: start: 20120726, end: 20121206
  6. LASIX /00032601/ [Suspect]
     Indication: PLEURAL EFFUSION
     Dosage: 30 MG, QD
     Route: 048
     Dates: start: 20120622, end: 20120808
  7. ARICEPT                            /01318902/ [Concomitant]
     Indication: DEMENTIA
     Dosage: 3 MG, QD
     Route: 048
     Dates: start: 20120726, end: 20120808
  8. ARICEPT                            /01318902/ [Concomitant]
     Dosage: 5 MG, QD
     Route: 048
     Dates: start: 20120809
  9. MYSLEE [Concomitant]
     Indication: INSOMNIA
     Dosage: 5 MG, QD
     Route: 048
     Dates: start: 20120726, end: 20120810
  10. WARFARIN [Concomitant]
     Indication: ATRIAL FIBRILLATION
     Dosage: 1 MG, QD
     Route: 048
     Dates: start: 20120810, end: 20130227
  11. WARFARIN [Concomitant]
     Dosage: 1.5 MG QD
     Route: 048
     Dates: start: 20130228
  12. PARIET [Concomitant]
     Indication: GASTRIC ULCER
     Dosage: 10 MG, QD
     Route: 048
     Dates: start: 20120810
  13. LENDORMIN D [Concomitant]
     Indication: INSOMNIA
     Dosage: 0.25 MG, QD
     Route: 048
     Dates: start: 20120811, end: 20120915

REACTIONS (4)
  - Pneumothorax [Recovering/Resolving]
  - Dehydration [Recovering/Resolving]
  - Liver disorder [Recovering/Resolving]
  - Urinary tract infection [Recovering/Resolving]
